FAERS Safety Report 7047132-X (Version None)
Quarter: 2010Q4

REPORT INFORMATION
  Report Type: 
  Country: None (occurrence: None)
  Receive Date: 20101015
  Receipt Date: 20101008
  Transmission Date: 20110411
  Serious: Yes (Hospitalization)
  Sender: FDA-Public Use
  Company Number: US-ALEXION-A201000333

PATIENT
  Sex: Male

DRUGS (14)
  1. SOLIRIS [Suspect]
     Indication: PAROXYSMAL NOCTURNAL HAEMOGLOBINURIA
     Dosage: 600 MG, QW
     Route: 042
     Dates: start: 20090318, end: 20090408
  2. SOLIRIS [Suspect]
     Dosage: 600 MG, QW X4W
     Route: 042
     Dates: start: 20090507, end: 20090501
  3. SOLIRIS [Suspect]
     Dosage: 900 MG, Q2W
     Route: 042
     Dates: start: 20090601
  4. AMBIEN [Concomitant]
     Indication: INSOMNIA
     Dosage: 10 MG, QHS, PRN
     Route: 048
  5. BENAZEPRIL HYDROCHLORIDE [Concomitant]
     Dosage: 40 MG, UNK
  6. COREG [Concomitant]
     Dosage: 20 MG, QD
     Route: 048
  7. DIOVAN                             /01319601/ [Concomitant]
     Dosage: 320 MG, UNK
  8. VITAMIN A [Concomitant]
     Dosage: 50000 IU, 2/W X24
     Route: 048
  9. FOLIC ACID [Concomitant]
     Dosage: 1 MG, UNK
  10. FUROSEMIDE [Concomitant]
     Dosage: 80 MG, QD
     Route: 048
  11. LOTENSIN                           /00909102/ [Concomitant]
     Route: 048
  12. METOPROLOL TARTRATE [Concomitant]
     Dosage: 100 MG, UNK
  13. NORVASC [Concomitant]
     Route: 048
  14. POTASSIUM CHLORIDE [Concomitant]
     Dosage: 20 MEQ, QD
     Route: 048

REACTIONS (16)
  - CONDITION AGGRAVATED [None]
  - CONTUSION [None]
  - ERECTILE DYSFUNCTION [None]
  - ERYTHEMA [None]
  - HAEMOGLOBINURIA [None]
  - HERPES ZOSTER [None]
  - INFLUENZA [None]
  - JOINT WARMTH [None]
  - LIMB DISCOMFORT [None]
  - OEDEMA PERIPHERAL [None]
  - OROPHARYNGEAL PAIN [None]
  - PAIN [None]
  - PAROXYSMAL NOCTURNAL HAEMOGLOBINURIA [None]
  - POST PROCEDURAL HAEMATOMA [None]
  - TENDONITIS [None]
  - WEIGHT DECREASED [None]
